FAERS Safety Report 10437283 (Version 1)
Quarter: 2014Q3

REPORT INFORMATION
  Report Type: Spontaneous
  Country: US (occurrence: US)
  Receive Date: 20140908
  Receipt Date: 20140908
  Transmission Date: 20150326
  Serious: No
  Sender: FDA-Public Use
  Company Number: US-BRISTOL-MYERS SQUIBB COMPANY-19631522

PATIENT
  Age: 29 Year
  Sex: Male

DRUGS (3)
  1. ABILIFY MAINTENA [Suspect]
     Active Substance: ARIPIPRAZOLE
     Indication: PSYCHOTIC DISORDER
     Dates: start: 201308, end: 20130926
  2. ABILIFY [Suspect]
     Active Substance: ARIPIPRAZOLE
     Indication: PSYCHOTIC DISORDER
     Dates: start: 201307, end: 201308
  3. PROLIXIN [Suspect]
     Active Substance: FLUPHENAZINE HYDROCHLORIDE
     Dates: start: 201305, end: 201307

REACTIONS (7)
  - Off label use [Unknown]
  - Insomnia [Unknown]
  - Disturbance in attention [Unknown]
  - Agitation [Unknown]
  - Impatience [Unknown]
  - Musculoskeletal discomfort [Unknown]
  - Restlessness [Unknown]

NARRATIVE: CASE EVENT DATE: 201305
